FAERS Safety Report 6771249-8 (Version None)
Quarter: 2010Q2

REPORT INFORMATION
  Report Type: 
  Country: None (occurrence: None)
  Receive Date: 20100616
  Receipt Date: 20100609
  Transmission Date: 20101027
  Serious: Yes (Other)
  Sender: FDA-Public Use
  Company Number: PK-BAYER-201028377GPV

PATIENT
  Sex: Male

DRUGS (4)
  1. DACARBAZINE [Suspect]
     Indication: HODGKIN'S DISEASE
  2. DOXORUBICIN HCL [Suspect]
     Indication: HODGKIN'S DISEASE
  3. BLEOMYCIN [Suspect]
     Indication: HODGKIN'S DISEASE
  4. VINBLASTINE SULFATE [Suspect]
     Indication: HODGKIN'S DISEASE

REACTIONS (9)
  - ANAEMIA [None]
  - CONVULSION [None]
  - DIARRHOEA [None]
  - NEUTROPENIA [None]
  - PALLOR [None]
  - PYREXIA [None]
  - THROMBOCYTOPENIA [None]
  - THROMBOPHLEBITIS [None]
  - VOMITING [None]
